FAERS Safety Report 4736291-7 (Version None)
Quarter: 2005Q3

REPORT INFORMATION
  Report Type: 
  Country: None (occurrence: None)
  Receive Date: 20050804
  Receipt Date: 20050725
  Transmission Date: 20060218
  Serious: Yes (Other)
  Sender: FDA-Public Use
  Company Number: 2005106774

PATIENT
  Sex: Male
  Weight: 104.3273 kg

DRUGS (1)
  1. XALATAN [Suspect]
     Indication: GLAUCOMA
     Dosage: 3 MCG (1.5 MCG, QHS INTERVAL: AT BEDTIME), OPHTHALMIC
     Route: 047
     Dates: start: 20010101

REACTIONS (3)
  - CATARACT OPERATION [None]
  - INCORRECT DOSE ADMINISTERED [None]
  - PHARMACEUTICAL PRODUCT COMPLAINT [None]
